FAERS Safety Report 18530877 (Version 4)
Quarter: 2022Q1

REPORT INFORMATION
  Report Type: Report from Study
  Country: CL (occurrence: CL)
  Receive Date: 20201121
  Receipt Date: 20220218
  Transmission Date: 20220424
  Serious: Yes (Other)
  Sender: FDA-Public Use
  Company Number: NVSC2020CL019892

PATIENT
  Age: 58 Year
  Sex: Female

DRUGS (9)
  1. COSENTYX [Suspect]
     Active Substance: SECUKINUMAB
     Indication: Psoriatic arthropathy
     Dosage: 150 MG, QMO
     Route: 058
     Dates: start: 20200106
  2. COSENTYX [Suspect]
     Active Substance: SECUKINUMAB
     Dosage: 150 MG, QMO
     Route: 065
     Dates: start: 20200120
  3. COSENTYX [Suspect]
     Active Substance: SECUKINUMAB
     Dosage: 150 MG, QMO
     Route: 065
     Dates: start: 20200304, end: 20200406
  4. COSENTYX [Suspect]
     Active Substance: SECUKINUMAB
     Dosage: 150 MG, QMO
     Route: 058
     Dates: start: 20200601
  5. COSENTYX [Suspect]
     Active Substance: SECUKINUMAB
     Dosage: 150 MG, QMO
     Route: 058
     Dates: start: 20210211
  6. COSENTYX [Suspect]
     Active Substance: SECUKINUMAB
     Dosage: 150 MG
     Route: 065
     Dates: start: 20220125
  7. PREGABALIN [Suspect]
     Active Substance: PREGABALIN
     Indication: Product used for unknown indication
     Dosage: UNK
     Route: 048
  8. PREGABALIN [Suspect]
     Active Substance: PREGABALIN
     Dosage: UNK
     Route: 048
     Dates: start: 20200601
  9. INFLUENZA VIRUS VACCINE [Concomitant]
     Active Substance: INFLUENZA VIRUS VACCINE
     Indication: Product used for unknown indication
     Dosage: UNK
     Route: 065

REACTIONS (34)
  - Immunosuppression [Unknown]
  - Erysipelas [Recovered/Resolved]
  - Nausea [Not Recovered/Not Resolved]
  - Gait inability [Unknown]
  - Spinal pain [Unknown]
  - Inflammation [Recovered/Resolved]
  - Sacroiliitis [Unknown]
  - Bone erosion [Unknown]
  - Oedema [Unknown]
  - Oropharyngeal pain [Unknown]
  - Pain in extremity [Unknown]
  - Hand deformity [Unknown]
  - Finger deformity [Unknown]
  - Rhinorrhoea [Unknown]
  - Sleep disorder [Unknown]
  - Arthralgia [Unknown]
  - Pruritus [Unknown]
  - Nervousness [Unknown]
  - Obsessive thoughts [Unknown]
  - Generalised anxiety disorder [Unknown]
  - Skin tightness [Recovering/Resolving]
  - Abdominal discomfort [Unknown]
  - Infection [Unknown]
  - Psoriasis [Recovered/Resolved]
  - Wound [Recovering/Resolving]
  - Skin lesion [Unknown]
  - Skin plaque [Not Recovered/Not Resolved]
  - Dizziness [Recovering/Resolving]
  - Discomfort [Recovering/Resolving]
  - Pyrexia [Unknown]
  - Bone pain [Recovering/Resolving]
  - Nasopharyngitis [Recovering/Resolving]
  - Nasal congestion [Recovering/Resolving]
  - Inappropriate schedule of product administration [Unknown]

NARRATIVE: CASE EVENT DATE: 20200404
